FAERS Safety Report 4498316-6 (Version None)
Quarter: 2004Q4

REPORT INFORMATION
  Report Type: 
  Country: None (occurrence: None)
  Receive Date: 20041108
  Receipt Date: 20041108
  Transmission Date: 20050328
  Serious: Yes (Hospitalization, Other)
  Sender: FDA-Public Use
  Company Number: None

PATIENT
  Age: 49 Year
  Sex: Female

DRUGS (1)
  1. MIVACURIUM [Suspect]
     Indication: INTUBATION
     Dosage: 14 MG IV X 1
     Route: 042
     Dates: start: 20041012

REACTIONS (1)
  - ANAESTHETIC COMPLICATION NEUROLOGICAL [None]
